FAERS Safety Report 8557211-3 (Version None)
Quarter: 2012Q3

REPORT INFORMATION
  Report Type: 
  Country: None (occurrence: None)
  Receive Date: 20120801
  Receipt Date: 20120730
  Transmission Date: 20120928
  Serious: Yes (Life-Threatening)
  Sender: FDA-Public Use
  Company Number: PHHY2012CA065966

PATIENT

DRUGS (8)
  1. RASILEZ [Suspect]
     Dosage: 1 DF, DAILY
  2. TIAZAC [Concomitant]
  3. CRESTOR [Concomitant]
  4. CLONIDINE [Concomitant]
  5. EFFEXOR [Concomitant]
  6. SEROQUEL [Concomitant]
  7. ASPIRIN [Concomitant]
  8. ATACAND HCT [Concomitant]
     Dosage: 1 DF, EVERY DAY

REACTIONS (4)
  - HYPOTENSION [None]
  - BRADYCARDIA [None]
  - ACIDOSIS [None]
  - RENAL FAILURE ACUTE [None]
